FAERS Safety Report 8479807-X (Version None)
Quarter: 2012Q2

REPORT INFORMATION
  Report Type: 
  Country: None (occurrence: None)
  Receive Date: 20120618
  Receipt Date: 20120605
  Transmission Date: 20120825
  Serious: Yes (Other)
  Sender: FDA-Public Use
  Company Number: DSA_57787_2012

PATIENT
  Sex: Female

DRUGS (2)
  1. FLAGYL [Suspect]
     Indication: POSTOPERATIVE CARE
     Dosage: (EVERY 12 HOURS)
  2. CIPROFLOXACIN [Concomitant]

REACTIONS (4)
  - CONFUSIONAL STATE [None]
  - DEPRESSION [None]
  - APPARENT DEATH [None]
  - DISCOMFORT [None]
